FAERS Safety Report 5673939-7 (Version None)
Quarter: 2008Q2

REPORT INFORMATION
  Report Type: 
  Country: None (occurrence: None)
  Receive Date: 20080226
  Receipt Date: 20070618
  Transmission Date: 20081010
  Serious: Yes (Other)
  Sender: FDA-Public Use
  Company Number: DSA_30134_2007

PATIENT
  Age: 63 Year
  Sex: Female

DRUGS (4)
  1. VASOTEC [Suspect]
     Dosage: (5 MG QD NEW FORMULATION ORAL)
     Route: 048
     Dates: start: 20070611, end: 20070613
  2. VASOTEC [Suspect]
     Dosage: (DF ORAL), (DF)
     Route: 048
     Dates: start: 19900101, end: 20070610
  3. VASOTEC [Suspect]
     Dosage: (DF ORAL), (DF)
     Route: 048
     Dates: start: 20070614
  4. VASOTEC [Suspect]
     Dosage: (DF ORAL)
     Route: 048
     Dates: start: 20070614

REACTIONS (4)
  - BLOOD PRESSURE INADEQUATELY CONTROLLED [None]
  - CYSTITIS [None]
  - PHARMACEUTICAL PRODUCT COMPLAINT [None]
  - SYNCOPE [None]
